FAERS Safety Report 9991574 (Version 1)
Quarter: 2014Q1

REPORT INFORMATION
  Report Type: Spontaneous
  Country: US (occurrence: US)
  Receive Date: 20140310
  Receipt Date: 20140310
  Transmission Date: 20141002
  Serious: Yes (Other)
  Sender: FDA-Public Use
  Company Number: US-PFIZER INC-2014064960

PATIENT
  Age: 53 Year
  Sex: Female

DRUGS (9)
  1. IRINOTECAN HCL [Suspect]
     Indication: COLON CANCER METASTATIC
     Dosage: 6 TWO-WEEK CYCLES
  2. IRINOTECAN HCL [Suspect]
     Dosage: 180 MG/M2 [340 MG] OVER 90 MINUTES
  3. BEVACIZUMAB [Concomitant]
     Indication: COLON CANCER METASTATIC
     Dosage: 6 TWO-WEEK CYCLES
  4. BEVACIZUMAB [Concomitant]
     Dosage: UNK, OVER 90 MINUTES
  5. FLUOROURACIL [Concomitant]
     Indication: COLON CANCER METASTATIC
     Dosage: 6 TWO-WEEK CYCLES
  6. FLUOROURACIL [Concomitant]
     Dosage: UNK
  7. LEUCOVORIN [Concomitant]
     Indication: COLON CANCER METASTATIC
     Dosage: 6 TWO-WEEK CYCLES
  8. LEUCOVORIN [Concomitant]
     Dosage: UNK, OVER 120 MINUTES
  9. FLOXURIDINE [Concomitant]
     Indication: COLON CANCER METASTATIC
     Dosage: UNK

REACTIONS (1)
  - Immune thrombocytopenic purpura [Recovered/Resolved]
